FAERS Safety Report 12928557 (Version 1)
Quarter: 2016Q4

REPORT INFORMATION
  Report Type: Spontaneous
  Country: US (occurrence: US)
  Receive Date: 20161110
  Receipt Date: 20161110
  Transmission Date: 20170207
  Serious: Yes (Hospitalization, Other)
  Sender: FDA-Public Use
  Company Number: US-BEH-2016075076

PATIENT
  Sex: Female
  Weight: 97.52 kg

DRUGS (34)
  1. LOSARTAN. [Concomitant]
     Active Substance: LOSARTAN
  2. ZANTAC [Concomitant]
     Active Substance: RANITIDINE HYDROCHLORIDE
  3. FLORICAL [Concomitant]
     Active Substance: DIETARY SUPPLEMENT
  4. METOPROLOL. [Concomitant]
     Active Substance: METOPROLOL
  5. MUCINEX [Concomitant]
     Active Substance: GUAIFENESIN
  6. EPIPEN [Concomitant]
     Active Substance: EPINEPHRINE
  7. AMOXICILLIN. [Concomitant]
     Active Substance: AMOXICILLIN
  8. TYLENOL EXTRA STRENGTH [Concomitant]
     Active Substance: ACETAMINOPHEN
  9. HIZENTRA [Suspect]
     Active Substance: HUMAN IMMUNOGLOBULIN G
     Indication: HYPOGAMMAGLOBULINAEMIA
     Dosage: 15 G, QW
     Route: 058
     Dates: start: 20130410
  10. DOXYCYCLINE. [Concomitant]
     Active Substance: DOXYCYCLINE
  11. CELEXA [Concomitant]
     Active Substance: CITALOPRAM HYDROBROMIDE
  12. ATROVENT [Concomitant]
     Active Substance: IPRATROPIUM BROMIDE
  13. ATIVAN [Concomitant]
     Active Substance: LORAZEPAM
  14. LIDODERM [Concomitant]
     Active Substance: LIDOCAINE
  15. CEFTIN [Concomitant]
     Active Substance: CEFUROXIME AXETIL
  16. SALINE                             /00075401/ [Concomitant]
     Active Substance: SODIUM CHLORIDE
  17. ALBUTEROL                          /00139501/ [Concomitant]
     Active Substance: ALBUTEROL
  18. VERAMYST [Concomitant]
     Active Substance: FLUTICASONE FUROATE
  19. ZITHROMAX [Concomitant]
     Active Substance: AZITHROMYCIN DIHYDRATE
  20. PERCOCET                           /00446701/ [Concomitant]
     Active Substance: ACETAMINOPHEN\OXYCODONE HYDROCHLORIDE\OXYCODONE TEREPHTHALATE
  21. PRILOSEC [Concomitant]
     Active Substance: OMEPRAZOLE MAGNESIUM
  22. KETOPROFEN. [Concomitant]
     Active Substance: KETOPROFEN
  23. QVAR [Concomitant]
     Active Substance: BECLOMETHASONE DIPROPIONATE
  24. FLUTICASONE FUROATE [Concomitant]
     Active Substance: FLUTICASONE FUROATE
  25. LASIX [Concomitant]
     Active Substance: FUROSEMIDE
  26. SEREVENT DISKUS [Concomitant]
     Active Substance: SALMETEROL XINAFOATE
  27. TEARS [Concomitant]
  28. CYMBALTA [Concomitant]
     Active Substance: DULOXETINE HYDROCHLORIDE
  29. SINGULAIR [Concomitant]
     Active Substance: MONTELUKAST SODIUM
  30. ZYRTEC [Concomitant]
     Active Substance: CETIRIZINE HYDROCHLORIDE
  31. HIZENTRA [Suspect]
     Active Substance: HUMAN IMMUNOGLOBULIN G
     Dosage: UNK
     Route: 058
  32. DIPHENHYDRAMINE. [Concomitant]
     Active Substance: DIPHENHYDRAMINE
  33. ZOCOR [Concomitant]
     Active Substance: SIMVASTATIN
  34. MULTIVITAMINS [Concomitant]
     Active Substance: VITAMINS

REACTIONS (3)
  - Cardiac failure congestive [Unknown]
  - Catheterisation cardiac [Unknown]
  - Tooth abscess [Unknown]
